FAERS Safety Report 8844844 (Version 1)
Quarter: 2012Q4

REPORT INFORMATION
  Report Type: 
  Country: US (occurrence: US)
  Receive Date: 20121017
  Receipt Date: 20121017
  Transmission Date: 20130627
  Serious: No
  Sender: FDA-Public Use
  Company Number: US-TEVA-364910USA

PATIENT
  Age: 23 Year
  Sex: Female
  Weight: 83.99 kg

DRUGS (3)
  1. PLAN B ONE-STEP [Suspect]
     Indication: POST COITAL CONTRACEPTION
     Dosage: 1.5 Milligram Daily;
     Route: 048
     Dates: start: 20121007, end: 20121007
  2. ADDERALL [Concomitant]
     Indication: ATTENTION DEFICIT/HYPERACTIVITY DISORDER
     Dosage: 60 Milligram Daily;
     Route: 048
  3. KLONOPIN [Concomitant]
     Indication: ANXIETY DISORDER
     Dosage: 3 Milligram Daily;
     Route: 048

REACTIONS (2)
  - Abdominal distension [Unknown]
  - Menstruation irregular [Not Recovered/Not Resolved]
